FAERS Safety Report 8383031 (Version 2)
Quarter: 2012Q4

REPORT INFORMATION
  Report Type: 
  Country: US (occurrence: US)
  Receive Date: 20120130
  Receipt Date: 20120831
  Transmission Date: 20130627
  Serious: Yes (Hospitalization)
  Sender: FDA-Public Use
  Company Number: US-BAYER-2012-008629

PATIENT
  Age: 28 Year
  Sex: Female

DRUGS (4)
  1. YASMIN [Suspect]
     Route: 048
  2. YAZ [Suspect]
     Route: 048
  3. OCELLA [Suspect]
  4. CELEXA [Concomitant]
     Dosage: 40 mg, daily
     Route: 048

REACTIONS (5)
  - Pulmonary embolism [None]
  - Chest pain [None]
  - Dyspnoea [None]
  - Injury [None]
  - Pain [None]
